FAERS Safety Report 9476807 (Version 1)
Quarter: 2013Q3

REPORT INFORMATION
  Report Type: Spontaneous
  Country: US (occurrence: US)
  Receive Date: 20130826
  Receipt Date: 20130826
  Transmission Date: 20140515
  Serious: No
  Sender: FDA-Public Use
  Company Number: US-TARO-2012P1052185

PATIENT
  Age: 54 Year
  Sex: Female

DRUGS (3)
  1. CLOBETASOL PROPIONATE OINTMENT USP 0.05% [Suspect]
     Indication: PSORIASIS
     Route: 061
     Dates: start: 201207
  2. CLOBETASOL SHAMPOO (SANDOZ) [Suspect]
     Route: 061
     Dates: start: 201206
  3. CLOBETASOL LOTION (PERRIGO) [Concomitant]

REACTIONS (1)
  - Alopecia [Recovered/Resolved]
